FAERS Safety Report 22021013 (Version 1)
Quarter: 2023Q1

REPORT INFORMATION
  Report Type: Spontaneous
  Country: JP (occurrence: JP)
  Receive Date: 20230222
  Receipt Date: 20230222
  Transmission Date: 20230418
  Serious: Yes (Other)
  Sender: FDA-Public Use
  Company Number: JP-OTSUKA-2023_004650

PATIENT
  Age: 14 Year
  Sex: Female

DRUGS (2)
  1. BUSULFEX [Suspect]
     Active Substance: BUSULFAN
     Indication: Unrelated donor bone marrow transplantation therapy
     Dosage: 18.4 MG/KG
     Route: 065
  2. MELPHALAN [Concomitant]
     Active Substance: MELPHALAN
     Indication: Unrelated donor bone marrow transplantation therapy
     Dosage: 180 MG/M2
     Route: 065

REACTIONS (5)
  - Altered state of consciousness [Recovering/Resolving]
  - Venoocclusive liver disease [Recovering/Resolving]
  - Delirium [Unknown]
  - Respiratory failure [Unknown]
  - Pleural effusion [Unknown]
